FAERS Safety Report 20743728 (Version 1)
Quarter: 2022Q2

REPORT INFORMATION
  Report Type: Spontaneous
  Country: US (occurrence: US)
  Receive Date: 20220425
  Receipt Date: 20220425
  Transmission Date: 20220720
  Serious: Yes (Other)
  Sender: FDA-Public Use
  Company Number: US-AUROBINDO-AUR-APL-2022-014450

PATIENT
  Age: 49 Year
  Sex: Male

DRUGS (1)
  1. PREDNISONE [Suspect]
     Active Substance: PREDNISONE
     Indication: Arthralgia
     Dosage: 20 MILLIGRAM, ONCE A DAY (FOR 3 YEARS)
     Route: 065

REACTIONS (3)
  - Staphylococcal bacteraemia [Unknown]
  - Arthritis bacterial [Unknown]
  - Purulent pericarditis [Unknown]
